FAERS Safety Report 13993054 (Version 2)
Quarter: 2017Q4

REPORT INFORMATION
  Report Type: Spontaneous
  Country: US (occurrence: US)
  Receive Date: 20170920
  Receipt Date: 20171208
  Transmission Date: 20180321
  Serious: No
  Sender: FDA-Public Use
  Company Number: US-PFIZER INC-2017403473

PATIENT
  Age: 85 Year
  Sex: Female
  Weight: 79.38 kg

DRUGS (12)
  1. SAMCYCLOVIR [Concomitant]
     Indication: HERPES ZOSTER
     Dosage: 500 ONE TABLET ONCE A DAY (TAKING FOR ABOUT 8 YEARS)
     Route: 048
  2. NORVASC [Concomitant]
     Active Substance: AMLODIPINE BESYLATE
     Indication: HYPERTENSION
     Dosage: 0.5 TABLET ONCE A DAY (TAKING FOR 4 OR 5 YEARS)
     Route: 048
  3. TRAZODONE [Concomitant]
     Active Substance: TRAZODONE HYDROCHLORIDE
     Indication: INSOMNIA
     Dosage: .50 ONE TABLET ONCE AT NIGHT (TAKING FOR 12-15 YEARS)
  4. LEVOTHYROXINE. [Concomitant]
     Active Substance: LEVOTHYROXINE
     Indication: THYROID DISORDER
     Dosage: .75 ONE TABLET ONCE A DAY (TAKING FOR 10 YEARS)
     Route: 048
  5. ADVIL PM [Suspect]
     Active Substance: DIPHENHYDRAMINE CITRATE\IBUPROFEN
     Indication: INSOMNIA
     Dosage: 2 DF, 1X/DAY (ONLY TOOK 2 PILLS ONE NIGHT)
     Dates: start: 201709, end: 201709
  6. ANORO ELLIPTA [Concomitant]
     Active Substance: UMECLIDINIUM BROMIDE\VILANTEROL TRIFENATATE
     Indication: DYSPNOEA
     Dosage: ONE PUFF ONCE A DAY(TAKING FOR 3 MONTHS)
  7. XARELTO [Concomitant]
     Active Substance: RIVAROXABAN
     Indication: THROMBOSIS
     Dosage: .15 TABLET ONCE A DAY (TAKING FOR 8 OR 9 MONTHS)
     Route: 048
  8. ISOSORBIDE. [Concomitant]
     Active Substance: ISOSORBIDE
     Indication: ANGIOPATHY
     Dosage: .30 TABLET ONCE A DAY (STARTED TAKING ABOUT 2 YEARS AGO.)
     Route: 048
  9. SIMVASTATIN. [Concomitant]
     Active Substance: SIMVASTATIN
     Dosage: .20 MG ONE TABLET ONCE A DAY
     Route: 048
  10. TYLENOL [Concomitant]
     Active Substance: ACETAMINOPHEN
     Indication: PAIN
     Dosage: UNK UNK, AS NEEDED
  11. PINDOLOL. [Concomitant]
     Active Substance: PINDOLOL
     Indication: HYPERTENSION
     Dosage: 2.5 ONE TABLET ONCE A DAY (STARTED TAKING ABOUT 2 YEARS AGO.)
     Route: 048
  12. DEXILANT [Concomitant]
     Active Substance: DEXLANSOPRAZOLE
     Indication: GASTROOESOPHAGEAL REFLUX DISEASE
     Dosage: TAKING FOR 3 OR 4 YEARS

REACTIONS (5)
  - Tremor [Recovered/Resolved]
  - Feeling abnormal [Recovered/Resolved]
  - Feeling jittery [Recovered/Resolved]
  - Chills [Recovered/Resolved]
  - Drug ineffective [Recovered/Resolved]

NARRATIVE: CASE EVENT DATE: 20170910
